FAERS Safety Report 6750410-2 (Version None)
Quarter: 2010Q2

REPORT INFORMATION
  Report Type: 
  Country: None (occurrence: None)
  Receive Date: 20100601
  Receipt Date: 20100519
  Transmission Date: 20101027
  Serious: Yes (Other)
  Sender: FDA-Public Use
  Company Number: FI-ELI_LILLY_AND_COMPANY-FI201005005274

PATIENT
  Age: 52 Year
  Sex: Female

DRUGS (3)
  1. CYMBALTA [Suspect]
     Indication: DEPRESSION
     Dosage: 30 MG, DAILY (1/D)
     Route: 048
     Dates: start: 20090306
  2. PULMICORT [Concomitant]
     Indication: ASTHMA
     Dosage: 200 UG, 2/D
     Route: 055
  3. CALCICHEW-D3 FORTE [Concomitant]
     Indication: SUPPLEMENTATION THERAPY
     Dosage: 500 MG CALCIUM, 10 UG VITAMIN D3, DAILY (1/D)
     Route: 065
     Dates: start: 20100101

REACTIONS (1)
  - BREAST CANCER [None]
